FAERS Safety Report 7527646-6 (Version None)
Quarter: 2011Q2

REPORT INFORMATION
  Report Type: 
  Country: None (occurrence: None)
  Receive Date: 20110607
  Receipt Date: 20110526
  Transmission Date: 20111010
  Serious: Yes (Other)
  Sender: FDA-Public Use
  Company Number: US-RANBAXY-2011US-44237

PATIENT

DRUGS (3)
  1. AMOXICILLIN [Suspect]
     Indication: ANTHRAX
  2. VALTREX [Concomitant]
     Indication: HERPES VIRUS INFECTION
     Dosage: UNK
     Route: 065
  3. AMOXICILLIN [Suspect]
     Indication: LYME DISEASE
     Dosage: 500 MG, UNK, 3 CAP/DAY
     Route: 048
     Dates: start: 20080329, end: 20080819

REACTIONS (2)
  - DRUG EXPOSURE DURING PREGNANCY [None]
  - CONGENITAL ANOMALY IN OFFSPRING [None]
